FAERS Safety Report 26141388 (Version 1)
Quarter: 2025Q4

REPORT INFORMATION
  Report Type: Spontaneous
  Country: US (occurrence: None)
  Receive Date: 20251210
  Receipt Date: 20251210
  Transmission Date: 20260118
  Serious: No
  Sender: HALOZYME
  Company Number: US-HALOZYME THERAPEUTICS, INC.-2025-US-TX -03389

PATIENT
  Age: 18 Year

DRUGS (4)
  1. XYOSTED [Suspect]
     Active Substance: TESTOSTERONE ENANTHATE
     Indication: Klinefelter^s syndrome
     Dosage: 75 MG/0.5ML, Q 1 WK
     Route: 058
  2. CONCERTA [Concomitant]
     Active Substance: METHYLPHENIDATE HYDROCHLORIDE
     Indication: Product used for unknown indication
     Dosage: 54 MILLIGRAM
  3. PROZAC [Concomitant]
     Active Substance: FLUOXETINE HYDROCHLORIDE
     Indication: Product used for unknown indication
     Dosage: 20 MILLIGRAM
  4. GUANFACINE [Concomitant]
     Active Substance: GUANFACINE
     Indication: Product used for unknown indication
     Dosage: 2 MILLIGRAM

REACTIONS (3)
  - Injection site haemorrhage [Unknown]
  - Injection site pain [Unknown]
  - Product dose omission issue [Not Recovered/Not Resolved]
